FAERS Safety Report 17018536 (Version 1)
Quarter: 2019Q4

REPORT INFORMATION
  Report Type: Spontaneous
  Country: US (occurrence: US)
  Receive Date: 20191111
  Receipt Date: 20191111
  Transmission Date: 20200122
  Serious: Yes (Other)
  Sender: FDA-Public Use
  Company Number: US-GLENMARK PHARMACEUTICALS-2019GMK044076

PATIENT
  Age: 71 Year
  Sex: Male

DRUGS (1)
  1. CARVEDILOL. [Suspect]
     Active Substance: CARVEDILOL
     Indication: PRODUCT USED FOR UNKNOWN INDICATION
     Dosage: 6.25 MG, BID (EVERY 12 HOURS)
     Route: 048

REACTIONS (2)
  - Toxicity to various agents [Recovered/Resolved]
  - Shock [Recovered/Resolved]
